FAERS Safety Report 15309629 (Version 2)
Quarter: 2018Q4

REPORT INFORMATION
  Report Type: Spontaneous
  Country: US (occurrence: US)
  Receive Date: 20180823
  Receipt Date: 20181102
  Transmission Date: 20190204
  Serious: Yes (Other)
  Sender: FDA-Public Use
  Company Number: US-BRISTOL-MYERS SQUIBB COMPANY-BMS-2018-078407

PATIENT
  Age: 74 Year
  Sex: Female
  Weight: 63.49 kg

DRUGS (1)
  1. ELIQUIS [Suspect]
     Active Substance: APIXABAN
     Indication: CEREBROVASCULAR ACCIDENT PROPHYLAXIS
     Dosage: 5 MG, BID
     Route: 048
     Dates: start: 201710

REACTIONS (6)
  - Post procedural haemorrhage [Recovered/Resolved]
  - Complex regional pain syndrome [Unknown]
  - Ischaemic stroke [Unknown]
  - Tooth infection [Unknown]
  - Alopecia [Unknown]
  - Diverticulitis [Unknown]

NARRATIVE: CASE EVENT DATE: 20181003
